FAERS Safety Report 20962997 (Version 1)
Quarter: 2022Q2

REPORT INFORMATION
  Report Type: Report from Study
  Country: US (occurrence: US)
  Receive Date: 20220615
  Receipt Date: 20220615
  Transmission Date: 20220721
  Serious: No
  Sender: FDA-Public Use
  Company Number: US-NOVARTISTESTPH-NVSC2022US137572

PATIENT
  Sex: Female

DRUGS (2)
  1. ILARIS [Suspect]
     Active Substance: CANAKINUMAB
     Indication: Juvenile idiopathic arthritis
     Dosage: 80 MG, QOD
     Route: 058
     Dates: start: 20191012
  2. ILARIS [Suspect]
     Active Substance: CANAKINUMAB
     Dosage: 220 MG, QOD
     Route: 058

REACTIONS (1)
  - Arthritis [Unknown]
